FAERS Safety Report 9332948 (Version 2)
Quarter: 2013Q2

REPORT INFORMATION
  Report Type: Spontaneous
  Country: JP (occurrence: JP)
  Receive Date: 20130606
  Receipt Date: 20130614
  Transmission Date: 20140414
  Serious: Yes (Other)
  Sender: FDA-Public Use
  Company Number: JP-ASTELLAS-2013JP006362

PATIENT
  Sex: Female

DRUGS (2)
  1. PROGRAF [Suspect]
     Indication: RHEUMATOID ARTHRITIS
     Route: 048
  2. METHOTREXATE [Concomitant]
     Route: 065

REACTIONS (1)
  - Spinal operation [Unknown]
